FAERS Safety Report 8972775 (Version 1)
Quarter: 2012Q4

REPORT INFORMATION
  Report Type: 
  Country: US (occurrence: US)
  Receive Date: 20121219
  Receipt Date: 20121219
  Transmission Date: 20130627
  Serious: No
  Sender: FDA-Public Use
  Company Number: US-BAYER-2012-132956

PATIENT
  Age: 19 Year
  Sex: Female

DRUGS (2)
  1. GIANVI [Suspect]
     Indication: MENSTRUAL CRAMPS
     Dosage: UNK
     Dates: start: 2012
  2. GIANVI [Suspect]
     Indication: VOMITING

REACTIONS (3)
  - Nausea [None]
  - Vomiting [None]
  - Off label use [None]
